FAERS Safety Report 25354240 (Version 2)
Quarter: 2025Q3

REPORT INFORMATION
  Report Type: Spontaneous
  Country: US (occurrence: US)
  Receive Date: 20250523
  Receipt Date: 20250729
  Transmission Date: 20251020
  Serious: No
  Sender: SANOFI AVENTIS
  Company Number: US-SA-2025SA147279

PATIENT
  Age: 51 Year
  Sex: Female

DRUGS (1)
  1. KEVZARA [Suspect]
     Active Substance: SARILUMAB
     Indication: Rheumatoid arthritis
     Dosage: 200 MG, QOW
     Route: 058
     Dates: start: 202504

REACTIONS (9)
  - Loss of personal independence in daily activities [Unknown]
  - Arthralgia [Unknown]
  - Gait disturbance [Unknown]
  - Joint swelling [Unknown]
  - Condition aggravated [Unknown]
  - Back pain [Unknown]
  - Urinary tract infection [Unknown]
  - Blood urine present [Unknown]
  - Dysuria [Unknown]

NARRATIVE: CASE EVENT DATE: 20250101
